FAERS Safety Report 24341418 (Version 2)
Quarter: 2024Q3

REPORT INFORMATION
  Report Type: Spontaneous
  Country: US (occurrence: US)
  Receive Date: 20240920
  Receipt Date: 20240926
  Transmission Date: 20241017
  Serious: No
  Sender: TAKEDA
  Company Number: US-TAKEDA-2024TUS093366

PATIENT
  Sex: Male

DRUGS (1)
  1. HYQVIA [Suspect]
     Active Substance: HUMAN IMMUNOGLOBULIN G\HYALURONIDASE (HUMAN RECOMBINANT)
     Indication: Chronic inflammatory demyelinating polyradiculoneuropathy
     Dosage: UNK
     Route: 058

REACTIONS (2)
  - Drug ineffective [Unknown]
  - Asthenia [Unknown]
